FAERS Safety Report 14076050 (Version 1)
Quarter: 2017Q4

REPORT INFORMATION
  Report Type: Spontaneous
  Country: US (occurrence: US)
  Receive Date: 20171010
  Receipt Date: 20171010
  Transmission Date: 20180321
  Serious: No
  Sender: FDA-Public Use
  Company Number: US-MYLANLABS-2017M1011913

PATIENT
  Age: 68 Year
  Sex: Female
  Weight: 66.21 kg

DRUGS (1)
  1. URSODIOL CAPSULES [Suspect]
     Active Substance: URSODIOL
     Indication: CHOLANGITIS
     Dosage: 900 MG, AM + 600 MG PM
     Route: 048
     Dates: start: 201605

REACTIONS (6)
  - Localised oedema [Recovered/Resolved]
  - Oedema peripheral [Recovered/Resolved]
  - Dizziness [Recovered/Resolved]
  - Headache [Recovered/Resolved]
  - Drug ineffective for unapproved indication [Recovered/Resolved]
  - Nausea [Recovered/Resolved]

NARRATIVE: CASE EVENT DATE: 201701
